FAERS Safety Report 20567182 (Version 3)
Quarter: 2022Q1

REPORT INFORMATION
  Report Type: Spontaneous
  Country: HU (occurrence: HU)
  Receive Date: 20220308
  Receipt Date: 20220329
  Transmission Date: 20220423
  Serious: Yes (Hospitalization, Other)
  Sender: FDA-Public Use
  Company Number: HU-NOVARTISPH-NVSC2022HU050980

PATIENT
  Age: 6 Year
  Sex: Female

DRUGS (8)
  1. ELTROMBOPAG [Suspect]
     Active Substance: ELTROMBOPAG
     Indication: Immune thrombocytopenia
     Dosage: 25 MG
     Route: 048
  2. ELTROMBOPAG [Suspect]
     Active Substance: ELTROMBOPAG
     Dosage: UNK (DOSE INCREASED BY 50 PERCENT AFTER 3 MONTHS)
     Route: 065
  3. ELTROMBOPAG [Suspect]
     Active Substance: ELTROMBOPAG
     Dosage: UNK (DOSE REDUCED)
     Route: 065
  4. ELTROMBOPAG [Suspect]
     Active Substance: ELTROMBOPAG
     Dosage: 62.5 MG, QD
     Route: 065
     Dates: start: 20190924
  5. CYCLOPHOSPHAMIDE [Concomitant]
     Active Substance: CYCLOPHOSPHAMIDE
     Indication: Systemic lupus erythematosus
     Dosage: 500 MG/M2
     Route: 065
  6. CYCLOSPORINE [Concomitant]
     Active Substance: CYCLOSPORINE
     Indication: Product used for unknown indication
     Dosage: UNK
     Route: 065
  7. METHOTREXATE [Concomitant]
     Active Substance: METHOTREXATE
     Indication: Product used for unknown indication
     Dosage: 15 MG/M2, QW
     Route: 065
     Dates: start: 20190416
  8. METHOTREXATE [Concomitant]
     Active Substance: METHOTREXATE
     Dosage: 20 MG/M2, QW (INCREASED)
     Route: 065

REACTIONS (3)
  - Nephrotic syndrome [Not Recovered/Not Resolved]
  - Jugular vein thrombosis [Unknown]
  - Drug ineffective [Unknown]

NARRATIVE: CASE EVENT DATE: 20181201
